FAERS Safety Report 8346100 (Version 2)
Quarter: 2012Q4

REPORT INFORMATION
  Report Type: 
  Country: NO (occurrence: NO)
  Receive Date: 20120120
  Receipt Date: 20121015
  Transmission Date: 20130627
  Serious: Yes (Hospitalization)
  Sender: FDA-Public Use
  Company Number: PHHY2012NO003108

PATIENT
  Age: 42 Year
  Sex: Female

DRUGS (1)
  1. GILENYA [Suspect]
     Route: 048
     Dates: start: 20120111

REACTIONS (5)
  - Blood pressure decreased [Recovered/Resolved]
  - Atrioventricular block first degree [Recovered/Resolved]
  - Atrioventricular block second degree [Recovered/Resolved]
  - Heart rate irregular [Recovered/Resolved]
  - Heart rate decreased [Recovered/Resolved]
